FAERS Safety Report 15343539 (Version 1)
Quarter: 2018Q3

REPORT INFORMATION
  Report Type: Spontaneous
  Country: US (occurrence: US)
  Receive Date: 20180903
  Receipt Date: 20180903
  Transmission Date: 20181010
  Serious: No
  Sender: FDA-Public Use
  Company Number: US-PFIZER INC-2018352776

PATIENT
  Age: 45 Year
  Sex: Male

DRUGS (11)
  1. VFEND [Interacting]
     Active Substance: VORICONAZOLE
     Indication: DERMATOPHYTOSIS
  2. ABILIFY [Concomitant]
     Active Substance: ARIPIPRAZOLE
     Dosage: 10 MG, 1X/DAY (BEDTIME)
     Route: 048
  3. PROZAC [Concomitant]
     Active Substance: FLUOXETINE HYDROCHLORIDE
     Dosage: 40 MG, DAILY
     Route: 048
  4. METOPROLOL. [Concomitant]
     Active Substance: METOPROLOL
  5. STRATTERA [Concomitant]
     Active Substance: ATOMOXETINE HYDROCHLORIDE
     Dosage: 60 MG, 1X/DAY (AC BREAKFAST)
     Route: 048
  6. FAMVIR [Concomitant]
     Active Substance: FAMCICLOVIR
     Dosage: 250 MG, 2X/DAY
     Route: 048
  7. SIMVASTATIN. [Interacting]
     Active Substance: SIMVASTATIN
     Dosage: 20 MG, 1X/DAY (BEDTIME)
     Route: 048
  8. GABAPENTIN. [Concomitant]
     Active Substance: GABAPENTIN
     Dosage: 600 MG, 3X/DAY
     Route: 048
  9. WELLBUTRIN [Concomitant]
     Active Substance: BUPROPION HYDROCHLORIDE
     Dosage: UNK
  10. VFEND [Suspect]
     Active Substance: VORICONAZOLE
     Indication: TENOSYNOVITIS
     Dosage: 200 MG, 2X/DAY (EVERY 12 HOURS)
     Route: 048
  11. TOPROL XL [Concomitant]
     Active Substance: METOPROLOL SUCCINATE
     Dosage: 100 MG, 1X/DAY (BEDTIME)
     Route: 048

REACTIONS (2)
  - Product use in unapproved indication [Unknown]
  - Drug interaction [Unknown]
